FAERS Safety Report 17498259 (Version 2)
Quarter: 2020Q1

REPORT INFORMATION
  Report Type: Spontaneous
  Country: JP (occurrence: JP)
  Receive Date: 20200304
  Receipt Date: 20200313
  Transmission Date: 20200409
  Serious: Yes (Other)
  Sender: FDA-Public Use
  Company Number: JP-ASTRAZENECA-2019SE31882

PATIENT
  Age: 41 Year
  Sex: Female

DRUGS (1)
  1. LYNPARZA [Suspect]
     Active Substance: OLAPARIB
     Indication: OVARIAN CANCER
     Dosage: 150.0MG UNKNOWN
     Route: 048
     Dates: start: 20190914, end: 20191028

REACTIONS (2)
  - Anaemia [Recovered/Resolved]
  - Malignant neoplasm progression [Not Recovered/Not Resolved]
